FAERS Safety Report 6272147-9 (Version None)
Quarter: 2009Q3

REPORT INFORMATION
  Report Type: 
  Country: None (occurrence: None)
  Receive Date: 20090717
  Receipt Date: 20090707
  Transmission Date: 20100115
  Serious: Yes (Hospitalization)
  Sender: FDA-Public Use
  Company Number: FR-PFIZER INC-2009236801

PATIENT
  Age: 49 Year

DRUGS (12)
  1. LYRICA [Suspect]
     Dosage: 300 MG, UNK
     Route: 048
     Dates: end: 20090614
  2. JANUVIA [Suspect]
     Dosage: 100 MG, 1X/DAY
     Route: 048
  3. TERCIAN [Suspect]
     Dosage: 25 MG, 1X/DAY
     Route: 048
     Dates: end: 20090614
  4. AMIODARONE [Concomitant]
     Dosage: UNK
     Route: 048
     Dates: end: 20090619
  5. PANTOPRAZOLE SODIUM [Concomitant]
     Indication: PROPHYLAXIS AGAINST GASTROINTESTINAL ULCER
     Dosage: 40 MG, 1X/DAY
     Route: 048
  6. TAHOR [Concomitant]
     Dosage: 10 MG, 1X/DAY
     Route: 048
  7. GLIMEPIRIDE [Concomitant]
     Indication: TYPE 2 DIABETES MELLITUS
     Dosage: 0.5 MG, 1X/DAY
     Route: 048
  8. METFORMIN [Concomitant]
     Indication: TYPE 2 DIABETES MELLITUS
     Dosage: 1000 MG, 3X/DAY
     Route: 048
  9. EQUANIL [Concomitant]
     Dosage: 400 MG, 3X/DAY
     Route: 048
  10. RIVOTRIL [Concomitant]
     Dosage: 10 DROPS X 1 DAY
     Route: 048
  11. CREON [Concomitant]
     Dosage: 25000 IU, 3X/DAY
     Route: 048
  12. ZOPICLONE [Concomitant]
     Dosage: 10 MG, 1X/DAY
     Route: 048

REACTIONS (3)
  - CARDIAC FAILURE [None]
  - HYPONATRAEMIA [None]
  - PULMONARY OEDEMA [None]
